FAERS Safety Report 20375873 (Version 1)
Quarter: 2022Q1

REPORT INFORMATION
  Report Type: Other
  Country: IT (occurrence: None)
  Receive Date: 20220125
  Receipt Date: 20220125
  Transmission Date: 20220423
  Serious: Yes (Other)
  Sender: FDA-Public Use
  Company Number: IT-ROCHE-3001584

PATIENT

DRUGS (6)
  1. TRASTUZUMAB [Suspect]
     Active Substance: TRASTUZUMAB
     Indication: HER2 positive breast cancer
     Dosage: OVER 30 MINUTES INFUSION (LOADING DOSE 4 MG/KG, 90 MINUTES INFUSION)
     Route: 042
  2. TRASTUZUMAB [Suspect]
     Active Substance: TRASTUZUMAB
     Dosage: FOR 14 CONSECUTIVE DOSES
     Route: 042
  3. FLUOROURACIL [Suspect]
     Active Substance: FLUOROURACIL
     Indication: HER2 positive breast cancer
     Dosage: DAY 1
     Route: 042
  4. EPIRUBICIN [Suspect]
     Active Substance: EPIRUBICIN
     Indication: HER2 positive breast cancer
     Dosage: DAY 1
     Route: 042
  5. CYCLOPHOSPHAMIDE [Suspect]
     Active Substance: CYCLOPHOSPHAMIDE
     Indication: HER2 positive breast cancer
     Dosage: DAY 1
     Route: 042
  6. PACLITAXEL [Suspect]
     Active Substance: PACLITAXEL
     Indication: HER2 positive breast cancer
     Route: 042

REACTIONS (10)
  - Neutropenia [Unknown]
  - Febrile neutropenia [Unknown]
  - Embolism [Unknown]
  - Nausea [Unknown]
  - Vomiting [Unknown]
  - Neurotoxicity [Unknown]
  - Pain [Unknown]
  - Fatigue [Unknown]
  - Neuropathy peripheral [Unknown]
  - Arrhythmia [Unknown]
